FAERS Safety Report 6908805-X (Version None)
Quarter: 2010Q3

REPORT INFORMATION
  Report Type: 
  Country: None (occurrence: None)
  Receive Date: 20100805
  Receipt Date: 20100727
  Transmission Date: 20110219
  Serious: Yes (Hospitalization)
  Sender: FDA-Public Use
  Company Number: A0873904A

PATIENT
  Age: 41 Year
  Sex: Female

DRUGS (1)
  1. AVANDIA [Suspect]
     Indication: DIABETES MELLITUS
     Dates: start: 20030101, end: 20090301

REACTIONS (1)
  - CEREBROVASCULAR ACCIDENT [None]
